FAERS Safety Report 9550344 (Version 1)
Quarter: 2013Q3

REPORT INFORMATION
  Report Type: Spontaneous
  Country: US (occurrence: US)
  Receive Date: 20130924
  Receipt Date: 20130924
  Transmission Date: 20140515
  Serious: No
  Sender: FDA-Public Use
  Company Number: US-SANOFI-AVENTIS-2013SA074946

PATIENT
  Age: 62 Year
  Sex: Female

DRUGS (6)
  1. AUBAGIO [Suspect]
     Indication: MULTIPLE SCLEROSIS
     Route: 048
     Dates: start: 201306
  2. CYMBALTA [Concomitant]
     Route: 065
  3. ALL OTHER THERAPEUTIC PRODUCTS [Concomitant]
     Dosage: 10-12.5
     Route: 065
  4. MULTIVITAMINS [Concomitant]
  5. VITAMIN D [Concomitant]
     Dosage: DOSE - 1000 UN
     Route: 065
  6. ACYCLOVIR [Concomitant]

REACTIONS (1)
  - Platelet count decreased [Unknown]
